FAERS Safety Report 9536177 (Version 1)
Quarter: 2013Q2

REPORT INFORMATION
  Report Type: Spontaneous
  Country: US (occurrence: None)
  Receive Date: 20130507
  Receipt Date: 20130507
  Transmission Date: 20140414
  Serious: Yes (Hospitalization, Other)
  Sender: FDA-Public Use
  Company Number: PHEH2012US025399

PATIENT
  Sex: Female

DRUGS (11)
  1. AFINITOR (RAD) UNKNOWN [Suspect]
     Indication: BREAST CANCER
     Route: 048
     Dates: start: 20120917, end: 20130107
  2. AROMASIN (EXEMESTANE) [Concomitant]
  3. COZAAR (LOSARTAN POTASSIUM) (50 MILLIGRAM, TABLETS) (LOSARTAN POTASSIUM) [Concomitant]
  4. LIPITOR (ATORVASTATIN CALCIUM) [Concomitant]
  5. METOPROLOL (METOPROLOL) [Concomitant]
  6. METFORMIN (METFORMIN) [Concomitant]
  7. KCL (POTASSIUM CHLORIDE) [Concomitant]
  8. ASPIRIN (ACETYLSALICYLIC ACID) [Concomitant]
  9. LOPRESSOR (METOPROLOL TARTRATE) [Concomitant]
  10. MORPHINE SULFATE (MORPHINE SULFATE) INJECTION [Concomitant]
  11. MULTIVITAMINS (ASCORBIC ACID, ERGOCALCIFEROL, FOLIC ACID, NICOTINAMIDE, PANTHENOL, RETINOL, RIBOFLAVIN, THIAMINE HYDROCHLORIDE) [Concomitant]

REACTIONS (7)
  - Renal failure [None]
  - Lung infiltration [None]
  - Dehydration [None]
  - Chromaturia [None]
  - Glomerular filtration rate decreased [None]
  - Blood creatinine increased [None]
  - Cough [None]
